FAERS Safety Report 4627202-3 (Version None)
Quarter: 2005Q1

REPORT INFORMATION
  Report Type: 
  Country: None (occurrence: None)
  Receive Date: 20050330
  Receipt Date: 20050315
  Transmission Date: 20050727
  Serious: Yes (Death, Hospitalization)
  Sender: FDA-Public Use
  Company Number: 213130

PATIENT
  Age: 76 Year
  Sex: Male
  Weight: 78.9 kg

DRUGS (14)
  1. AVASTIN [Suspect]
     Indication: COLORECTAL CANCER METASTATIC
     Dosage: 593 MG, Q3W, INTRAVENOUS
     Route: 042
     Dates: start: 20041110, end: 20041110
  2. IRINOTECAN HCL [Suspect]
     Indication: COLORECTAL CANCER METASTATIC
     Dosage: 236 MG, INTRAVENOUS
     Route: 042
     Dates: start: 20041110, end: 20041116
  3. BLINDED STUDY DRUG (INVESTIGATIONAL DRUG OR PLACEBO) [Suspect]
     Indication: COLORECTAL CANCER METASTATIC
     Dosage: 400 MG, INTRAVENOUS
     Route: 042
     Dates: start: 20041110, end: 20041101
  4. FLUOROURACIL [Suspect]
     Indication: COLORECTAL CANCER METASTATIC
     Dosage: 945 MG, INTRAVENOUS
     Route: 042
     Dates: start: 20041110, end: 20041116
  5. CALCIUM FOLINATE (LEUCOVORIN CALCIUM) [Suspect]
     Indication: COLORECTAL CANCER METASTATIC
     Dosage: 38 MG, INTRAVENOUS
     Route: 042
     Dates: start: 20041110, end: 20041116
  6. DOXAZOSIN MESILATE (DOXAZOSIN MESYLATE) [Concomitant]
  7. ENALAPRIL MALEATE [Concomitant]
  8. PANTOPRAZOLE (PANTOPRAZOLE) [Concomitant]
  9. ATENOLOL [Concomitant]
  10. POTASSIUM CHLORIDE [Concomitant]
  11. VICODIN (HYDROCODONE BITARTRATE, ACETAMINOPHEN) [Concomitant]
  12. LORAZEPAM [Concomitant]
  13. PROCHLORPERAZINE EDISYLATE (PROCHLORPERAZINE EDYSLATE) [Concomitant]
  14. MEGACE [Concomitant]

REACTIONS (4)
  - COLORECTAL CANCER [None]
  - GENERAL PHYSICAL HEALTH DETERIORATION [None]
  - MALIGNANT NEOPLASM PROGRESSION [None]
  - SPLENIC INFARCTION [None]
